FAERS Safety Report 5975123-6 (Version None)
Quarter: 2008Q4

REPORT INFORMATION
  Report Type: 
  Country: None (occurrence: None)
  Receive Date: 20081202
  Receipt Date: 20081121
  Transmission Date: 20090506
  Serious: Yes (Other)
  Sender: FDA-Public Use
  Company Number: US-CELGENEUS-163-21880-08090556

PATIENT
  Sex: Male

DRUGS (4)
  1. REVLIMID [Suspect]
     Indication: AMYLOIDOSIS
     Route: 048
     Dates: start: 20080813
  2. REVLIMID [Suspect]
     Route: 048
     Dates: start: 20080101
  3. REVLIMID [Suspect]
     Route: 048
     Dates: start: 20080101
  4. WARFARIN SODIUM [Concomitant]
     Route: 065
     Dates: start: 20080801

REACTIONS (6)
  - ERYTHEMA [None]
  - PERIORBITAL OEDEMA [None]
  - PHARYNGEAL OEDEMA [None]
  - RASH [None]
  - SWELLING [None]
  - TONGUE OEDEMA [None]
